FAERS Safety Report 5593294-0 (Version None)
Quarter: 2008Q1

REPORT INFORMATION
  Report Type: 
  Country: None (occurrence: None)
  Receive Date: 20080116
  Receipt Date: 20080110
  Transmission Date: 20080703
  Serious: Yes (Other)
  Sender: FDA-Public Use
  Company Number: A0702439A

PATIENT
  Age: 22 Year
  Sex: Female

DRUGS (5)
  1. LAMICTAL [Suspect]
     Indication: EPILEPSY
     Dosage: 700MG TWICE PER DAY
     Route: 048
     Dates: start: 20070701
  2. DEPAKOTE [Suspect]
     Indication: EPILEPSY
     Route: 048
  3. FOLIC ACID [Concomitant]
  4. NORTRIPTYLINE [Concomitant]
  5. PROPRANOLOL [Concomitant]

REACTIONS (5)
  - AMNESIA [None]
  - CONVULSION [None]
  - DISTURBANCE IN ATTENTION [None]
  - OVERDOSE [None]
  - WEIGHT INCREASED [None]
